FAERS Safety Report 5301618-4 (Version None)
Quarter: 2007Q2

REPORT INFORMATION
  Report Type: 
  Country: None (occurrence: None)
  Receive Date: 20070419
  Receipt Date: 20070411
  Transmission Date: 20071010
  Serious: Yes (Hospitalization, Other)
  Sender: FDA-Public Use
  Company Number: GB-JNJFOC-20070402765

PATIENT
  Sex: Male
  Weight: 86 kg

DRUGS (8)
  1. REMICADE [Suspect]
     Indication: ANKYLOSING SPONDYLITIS
     Route: 042
  2. METHOTREXATE [Concomitant]
  3. CO-CODAMOL [Concomitant]
  4. FOLIC ACID [Concomitant]
  5. HYDROXYCHLOROQUINE SULFATE [Concomitant]
  6. TAMULOSIN [Concomitant]
  7. SULPHADIAZINE [Concomitant]
  8. VOLTAREN [Concomitant]

REACTIONS (1)
  - MULTIPLE MYELOMA [None]
